FAERS Safety Report 7683825-9 (Version None)
Quarter: 2011Q3

REPORT INFORMATION
  Report Type: 
  Country: None (occurrence: None)
  Receive Date: 20110815
  Receipt Date: 20110810
  Transmission Date: 20111222
  Serious: Yes (Hospitalization, Other)
  Sender: FDA-Public Use
  Company Number: US-PFIZER INC-2005033141

PATIENT
  Sex: Male
  Weight: 88 kg

DRUGS (12)
  1. DILANTIN [Suspect]
     Dosage: 100MG 5 CAPSULES AT NIGHT DAILY
     Route: 048
     Dates: start: 20090101
  2. BENADRYL [Concomitant]
     Indication: MULTIPLE ALLERGIES
     Dosage: UNK
  3. CAFFEINE [Suspect]
     Dosage: UNK
     Dates: start: 20100526
  4. TYLENOL-500 [Concomitant]
     Indication: NASOPHARYNGITIS
     Dosage: UNK, AS NEEDED
  5. DILANTIN [Suspect]
     Indication: GRAND MAL CONVULSION
     Dosage: 450 MG, UNK
     Route: 048
     Dates: start: 19810101, end: 19820101
  6. DILANTIN [Suspect]
     Indication: CONVULSION
     Dosage: 100MG 4 CAPSULES AT NIGHT DAILY
     Route: 048
     Dates: start: 20040801, end: 20090101
  7. KEPPRA [Concomitant]
     Indication: STATUS EPILEPTICUS
  8. CLARITIN-D 24 HOUR [Suspect]
     Indication: SEASONAL ALLERGY
     Dosage: UNK
     Route: 048
     Dates: start: 20100501, end: 20100101
  9. SYNTHROID [Suspect]
     Dosage: UNK
     Route: 048
     Dates: start: 20100810
  10. FLONASE [Concomitant]
     Indication: MULTIPLE ALLERGIES
     Dosage: UNK
     Route: 065
  11. TYLENOL-500 [Concomitant]
     Indication: INFLUENZA
  12. KEPPRA [Concomitant]
     Indication: CONVULSION
     Dosage: 500 MG, UNK

REACTIONS (16)
  - LOSS OF CONSCIOUSNESS [None]
  - GRAND MAL CONVULSION [None]
  - INFLUENZA [None]
  - INSOMNIA [None]
  - POLYDIPSIA [None]
  - PNEUMONIA [None]
  - SEASONAL ALLERGY [None]
  - DEPRESSED MOOD [None]
  - HAEMORRHAGE [None]
  - NERVOUSNESS [None]
  - STRESS [None]
  - FEELING ABNORMAL [None]
  - STATUS EPILEPTICUS [None]
  - CONVULSION [None]
  - DIZZINESS [None]
  - FATIGUE [None]
